FAERS Safety Report 9677862 (Version 4)
Quarter: 2013Q4

REPORT INFORMATION
  Report Type: Report from Study
  Country: US (occurrence: US)
  Receive Date: 20131108
  Receipt Date: 20131204
  Transmission Date: 20140711
  Serious: Yes (Hospitalization)
  Sender: FDA-Public Use
  Company Number: US-SA-2013SA107167

PATIENT
  Age: 59 Year
  Sex: Male
  Weight: 94.3 kg

DRUGS (4)
  1. AUBAGIO [Suspect]
     Indication: MULTIPLE SCLEROSIS
     Route: 048
     Dates: end: 20131018
  2. LABETALOL [Concomitant]
  3. ATENOLOL [Concomitant]
  4. INDOCIN [Concomitant]

REACTIONS (6)
  - Cardiac failure congestive [Recovering/Resolving]
  - Hypertension [Unknown]
  - Gait disturbance [Unknown]
  - Anxiety [Unknown]
  - Depressed mood [Unknown]
  - Irritability [Unknown]
